FAERS Safety Report 5089669-9 (Version None)
Quarter: 2006Q3

REPORT INFORMATION
  Report Type: 
  Country: None (occurrence: None)
  Receive Date: 20060827
  Receipt Date: 20060818
  Transmission Date: 20061208
  Serious: Yes (Other)
  Sender: FDA-Public Use
  Company Number: US-JNJFOC-20060804347

PATIENT
  Age: 50 Year
  Sex: Male

DRUGS (1)
  1. REOPRO [Suspect]
     Indication: MYOCARDIAL INFARCTION

REACTIONS (1)
  - MYOCARDIAL INFARCTION [None]
